FAERS Safety Report 5063414-5 (Version None)
Quarter: 2006Q3

REPORT INFORMATION
  Report Type: 
  Country: None (occurrence: None)
  Receive Date: 20060724
  Receipt Date: 20060711
  Transmission Date: 20061208
  Serious: Yes (Hospitalization)
  Sender: FDA-Public Use
  Company Number: GXKR2006NZ03982

PATIENT
  Age: 46 Year
  Sex: Male

DRUGS (4)
  1. DEXTROAMETHORPHAN (NGX)(DEXTROMETHORPHAN) UNKNOWN [Suspect]
     Indication: NASOPHARYNGITIS
  2. CITALOPRAM (NGX) (CITALOPRAM) [Suspect]
     Dosage: 40 MG, QD
  3. METHADONE HCL [Concomitant]
  4. GABAPENTIN [Concomitant]

REACTIONS (16)
  - ABDOMINAL TENDERNESS [None]
  - BLOOD CREATINE PHOSPHOKINASE INCREASED [None]
  - C-REACTIVE PROTEIN INCREASED [None]
  - CLONUS [None]
  - CONFUSIONAL STATE [None]
  - DRUG INTERACTION [None]
  - HEADACHE [None]
  - HEART RATE INCREASED [None]
  - HYPERREFLEXIA [None]
  - HYPERTONIA [None]
  - PYREXIA [None]
  - SEPSIS [None]
  - SEROTONIN SYNDROME [None]
  - SPEECH DISORDER [None]
  - VOMITING [None]
  - WHITE BLOOD CELL COUNT INCREASED [None]
